FAERS Safety Report 22050359 (Version 1)
Quarter: 2023Q1

REPORT INFORMATION
  Report Type: Spontaneous
  Country: US (occurrence: None)
  Receive Date: 20230301
  Receipt Date: 20230301
  Transmission Date: 20230418
  Serious: Yes (Death, Other)
  Sender: FDA-Public Use
  Company Number: 2023A048883

PATIENT
  Age: 72 Year
  Sex: Female

DRUGS (2)
  1. LYNPARZA [Suspect]
     Active Substance: OLAPARIB
     Indication: Hepatobiliary cancer
     Route: 048
  2. LENVIMA [Suspect]
     Active Substance: LENVATINIB

REACTIONS (3)
  - Death [Fatal]
  - Recurrent cancer [Unknown]
  - Hepatic enzyme increased [Unknown]

NARRATIVE: CASE EVENT DATE: 20230122
